FAERS Safety Report 13785154 (Version 2)
Quarter: 2017Q4

REPORT INFORMATION
  Report Type: Spontaneous
  Country: US (occurrence: US)
  Receive Date: 20170724
  Receipt Date: 20171024
  Transmission Date: 20180320
  Serious: No
  Sender: FDA-Public Use
  Company Number: US-IMPAX LABORATORIES, INC-2017-IPXL-01723

PATIENT
  Age: 65 Year
  Sex: Male

DRUGS (2)
  1. RYTARY [Suspect]
     Active Substance: CARBIDOPA\LEVODOPA
     Dosage: 195MG TAKES 4 CAPSULES PER DAY
     Route: 048
     Dates: start: 2017
  2. RYTARY [Suspect]
     Active Substance: CARBIDOPA\LEVODOPA
     Indication: PARKINSON^S DISEASE
     Dosage: 2 DF (48.75/195MG) + 1 DF (36.25/145MG), THREE TIMES DAILY AND 2 DF 48.75/195 AT BEDTIME, 23.75/95MG
     Route: 048
     Dates: start: 2016

REACTIONS (3)
  - Labelled drug-food interaction medication error [Unknown]
  - Tremor [Recovering/Resolving]
  - Drug effect variable [Recovering/Resolving]
